FAERS Safety Report 4609732-3 (Version None)
Quarter: 2005Q1

REPORT INFORMATION
  Report Type: 
  Country: None (occurrence: None)
  Receive Date: 20050314
  Receipt Date: 20040625
  Transmission Date: 20050727
  Serious: No
  Sender: FDA-Public Use
  Company Number: 8560

PATIENT
  Age: 78 Year
  Sex: Male

DRUGS (4)
  1. CEFUROXIME [Suspect]
  2. ENALAPRILAT [Suspect]
  3. CEFADROXIL [Suspect]
  4. KETOPROFEN [Suspect]

REACTIONS (3)
  - AGRANULOCYTOSIS [None]
  - PRURITUS [None]
  - RASH [None]
